FAERS Safety Report 7609635-6 (Version None)
Quarter: 2011Q3

REPORT INFORMATION
  Report Type: 
  Country: None (occurrence: None)
  Receive Date: 20110714
  Receipt Date: 20110707
  Transmission Date: 20111222
  Serious: Yes (Hospitalization)
  Sender: FDA-Public Use
  Company Number: PHHO2011DE11752

PATIENT
  Sex: Male
  Weight: 74 kg

DRUGS (2)
  1. MARCUMAR [Concomitant]
     Dosage: UNK
  2. AFINITOR [Suspect]
     Indication: NEUROENDOCRINE TUMOUR
     Dosage: 10 MG, UNK
     Route: 048
     Dates: start: 20110513

REACTIONS (1)
  - FAECALOMA [None]
